FAERS Safety Report 7591721-0 (Version None)
Quarter: 2011Q3

REPORT INFORMATION
  Report Type: 
  Country: None (occurrence: None)
  Receive Date: 20110706
  Receipt Date: 20110621
  Transmission Date: 20111222
  Serious: Yes (Other)
  Sender: FDA-Public Use
  Company Number: US-BAYER-2011-006931

PATIENT
  Age: 21 Year
  Sex: Female
  Weight: 54 kg

DRUGS (8)
  1. YAZ [Suspect]
     Indication: PREMENSTRUAL SYNDROME
     Dosage: UNK
     Dates: start: 20070501, end: 20091101
  2. ACETAMINOPHEN AND HYDROCODONE BITARTRATE [Concomitant]
     Indication: PAIN
     Dosage: UNK
     Dates: start: 20080101, end: 20080201
  3. ROLAIDS [Concomitant]
     Indication: DYSPEPSIA
     Dosage: UNK
     Dates: start: 20080101
  4. PAXIL [Concomitant]
     Indication: UNEVALUABLE EVENT
     Dosage: UNK
     Dates: start: 20070901
  5. PAXIL [Concomitant]
     Dosage: 10 MG, UNK
     Dates: start: 20080101, end: 20080201
  6. FLUOXETINE HCL [Concomitant]
  7. VICODIN [Concomitant]
  8. ADVIL LIQUI-GELS [Concomitant]
     Indication: HEADACHE
     Dosage: UNK UNK, PRN
     Dates: start: 20080101

REACTIONS (3)
  - CHOLELITHIASIS [None]
  - CHEST PAIN [None]
  - PAIN [None]
